FAERS Safety Report 7708171-6 (Version None)
Quarter: 2011Q3

REPORT INFORMATION
  Report Type: 
  Country: None (occurrence: None)
  Receive Date: 20110825
  Receipt Date: 20110816
  Transmission Date: 20111222
  Serious: No
  Sender: FDA-Public Use
  Company Number: US-BIOGENIDEC-2011BI026868

PATIENT
  Age: 21 Year
  Sex: Female

DRUGS (1)
  1. TYSABRI [Suspect]
     Indication: MULTIPLE SCLEROSIS
     Route: 042
     Dates: start: 20110427

REACTIONS (6)
  - RASH PRURITIC [None]
  - INFUSION SITE RASH [None]
  - INFUSION SITE MASS [None]
  - RASH GENERALISED [None]
  - INFUSION SITE HAEMATOMA [None]
  - URTICARIA [None]
